FAERS Safety Report 13038546 (Version 2)
Quarter: 2016Q4

REPORT INFORMATION
  Report Type: Spontaneous
  Country: US (occurrence: US)
  Receive Date: 20161219
  Receipt Date: 20161219
  Transmission Date: 20170207
  Serious: No
  Sender: FDA-Public Use
  Company Number: US-AUROBINDO-AUR-APL-2016-05679

PATIENT
  Age: 10 Year
  Sex: Male

DRUGS (1)
  1. SERTRALINE ORAL CONCENTRATE [Suspect]
     Active Substance: SERTRALINE HYDROCHLORIDE
     Indication: PRODUCT USED FOR UNKNOWN INDICATION
     Dosage: 2.5 ML, DAILY
     Route: 048
     Dates: start: 20160427

REACTIONS (1)
  - Oral discomfort [Unknown]

NARRATIVE: CASE EVENT DATE: 20160427
